FAERS Safety Report 6851375-5 (Version None)
Quarter: 2010Q3

REPORT INFORMATION
  Report Type: 
  Country: None (occurrence: None)
  Receive Date: 20100717
  Receipt Date: 20080215
  Transmission Date: 20110219
  Serious: Yes (Life-Threatening, Hospitalization, Other)
  Sender: FDA-Public Use
  Company Number: US-PFIZER INC-2008005411

PATIENT
  Sex: Male
  Weight: 109.3 kg

DRUGS (6)
  1. CHANTIX [Suspect]
     Indication: SMOKING CESSATION THERAPY
  2. LISINOPRIL [Concomitant]
  3. TRAMADOL [Concomitant]
  4. CYCLOBENZAPRINE [Concomitant]
  5. OMEPRAZOLE [Concomitant]
  6. PERCOCET [Concomitant]

REACTIONS (1)
  - PULMONARY EMBOLISM [None]
